FAERS Safety Report 10237459 (Version 2)
Quarter: 2014Q3

REPORT INFORMATION
  Report Type: Report from Study
  Country: US (occurrence: US)
  Receive Date: 20140615
  Receipt Date: 20140909
  Transmission Date: 20150326
  Serious: Yes (Hospitalization, Other)
  Sender: FDA-Public Use
  Company Number: PHEH2014US011885

PATIENT
  Age: 74 Year
  Sex: Male
  Weight: 76 kg

DRUGS (9)
  1. CLOZARIL [Suspect]
     Active Substance: CLOZAPINE
     Dosage: 75 MG, DAILY
     Route: 048
  2. SINEMET [Concomitant]
     Active Substance: CARBIDOPA\LEVODOPA
     Dosage: 25 TO 100 UNITS  TID
     Route: 048
  3. MULTI VITAMIN + MINERAL [Concomitant]
     Dosage: UNK DAILY
     Route: 048
  4. DDAVP [Suspect]
     Active Substance: DESMOPRESSIN ACETATE
     Dosage: UKN 1/2 DAILY
  5. MIRABEGRON [Concomitant]
     Active Substance: MIRABEGRON
     Indication: POST-TRAUMATIC AMNESTIC DISORDER
     Dosage: 50 MG, AT BED TIME
     Route: 048
  6. TAMSULOSIN [Concomitant]
     Active Substance: TAMSULOSIN
     Indication: POST-TRAUMATIC AMNESTIC DISORDER
     Dosage: 0.4 MG, DAILY
  7. MIDODRINE [Concomitant]
     Active Substance: MIDODRINE
     Indication: POST-TRAUMATIC AMNESTIC DISORDER
     Dosage: 5 MG, TID
     Route: 048
  8. CLOZARIL [Suspect]
     Active Substance: CLOZAPINE
     Dosage: 25 MG, BID
     Route: 048
  9. OMEPRAZOLE. [Concomitant]
     Active Substance: OMEPRAZOLE
     Dosage: 20 MG, DAILY
     Route: 048

REACTIONS (7)
  - Exostosis [Recovering/Resolving]
  - Hallucination [Recovering/Resolving]
  - Enuresis [Recovering/Resolving]
  - Parkinson^s disease [Recovering/Resolving]
  - Dementia [Recovering/Resolving]
  - Muscular weakness [Recovering/Resolving]
  - Hyponatraemia [Recovering/Resolving]

NARRATIVE: CASE EVENT DATE: 20140611
